FAERS Safety Report 6303427-6 (Version None)
Quarter: 2009Q3

REPORT INFORMATION
  Report Type: 
  Country: None (occurrence: None)
  Receive Date: 20090810
  Receipt Date: 20090731
  Transmission Date: 20100115
  Serious: Yes (Other)
  Sender: FDA-Public Use
  Company Number: US-PFIZER INC-2004111554

PATIENT
  Sex: Female

DRUGS (7)
  1. PROVERA [Suspect]
     Indication: HORMONE REPLACEMENT THERAPY
     Dosage: 10 MG, UNK
     Route: 065
     Dates: start: 19900701, end: 19970101
  2. PREMARIN [Suspect]
     Indication: HORMONE REPLACEMENT THERAPY
     Dosage: 0.625 MG, UNK
     Dates: start: 19900701, end: 19970101
  3. PREMPRO [Suspect]
     Indication: HORMONE REPLACEMENT THERAPY
     Dosage: 0.625/2.5MG
     Route: 048
     Dates: start: 19970101, end: 20010101
  4. DIOVAN [Concomitant]
     Indication: CARDIAC DISORDER
     Dosage: 80/12.5MG
     Dates: start: 20000101
  5. CLONIDINE [Concomitant]
     Indication: BLOOD PRESSURE
     Dosage: 0.1 MG, UNK
     Dates: start: 20000101
  6. METOPROLOL [Concomitant]
     Indication: BLOOD PRESSURE
     Dosage: 50 MG, UNK
     Dates: start: 20000101
  7. NORVASC [Concomitant]
     Indication: BLOOD PRESSURE
     Dosage: 5 MG, UNK
     Dates: start: 20000101

REACTIONS (1)
  - BREAST CANCER FEMALE [None]
